FAERS Safety Report 11897638 (Version 4)
Quarter: 2018Q4

REPORT INFORMATION
  Report Type: Report from Study
  Country: BR (occurrence: BR)
  Receive Date: 20160108
  Receipt Date: 20181025
  Transmission Date: 20190204
  Serious: Yes (Other)
  Sender: FDA-Public Use
  Company Number: BR-ROCHE-1169211

PATIENT
  Age: 71 Year
  Sex: Female
  Weight: 54 kg

DRUGS (2)
  1. ACTEMRA [Suspect]
     Active Substance: TOCILIZUMAB
     Indication: RHEUMATOID ARTHRITIS
     Dosage: THE MOST RECENT ONE ON 27/SEP/2018.
     Route: 042
     Dates: start: 20100101, end: 20161001
  2. OMEGA 3 [Concomitant]
     Active Substance: OMEGA-3 FATTY ACIDS

REACTIONS (12)
  - Thyroid disorder [Recovering/Resolving]
  - Tendonitis [Not Recovered/Not Resolved]
  - Haemorrhoids [Not Recovered/Not Resolved]
  - Pain in extremity [Not Recovered/Not Resolved]
  - Foot fracture [Recovered/Resolved]
  - Pain [Not Recovered/Not Resolved]
  - Mammogram abnormal [Unknown]
  - Cataract [Unknown]
  - Neck pain [Not Recovered/Not Resolved]
  - Arthralgia [Recovered/Resolved]
  - Fall [Unknown]
  - Musculoskeletal pain [Recovered/Resolved]

NARRATIVE: CASE EVENT DATE: 201610
